FAERS Safety Report 10245143 (Version 2)
Quarter: 2014Q3

REPORT INFORMATION
  Report Type: Spontaneous
  Country: DK (occurrence: SE)
  Receive Date: 20140618
  Receipt Date: 20140701
  Transmission Date: 20150326
  Serious: Yes (Hospitalization)
  Sender: FDA-Public Use
  Company Number: SE-FRI-1000068270

PATIENT
  Age: 89 Year
  Sex: Male

DRUGS (6)
  1. RISPERDAL [Concomitant]
     Active Substance: RISPERIDONE
  2. FINASTERID ACTAVIS [Concomitant]
  3. ZOPICLONE [Concomitant]
     Active Substance: ZOPICLONE
  4. MEMANTINE [Suspect]
     Active Substance: MEMANTINE
     Indication: DEMENTIA
     Dosage: 10 MG
     Route: 048
     Dates: start: 20140321, end: 20140430
  5. OXASCAND [Concomitant]
     Active Substance: OXAZEPAM
  6. VISCOTEARS [Concomitant]
     Active Substance: CARBOMER

REACTIONS (1)
  - Pancreatitis [Recovered/Resolved with Sequelae]

NARRATIVE: CASE EVENT DATE: 20140427
